FAERS Safety Report 24297789 (Version 1)
Quarter: 2024Q3

REPORT INFORMATION
  Report Type: Spontaneous
  Country: US (occurrence: None)
  Receive Date: 20240906
  Receipt Date: 20240906
  Transmission Date: 20241016
  Serious: No
  Sender: Public
  Company Number: None

PATIENT
  Age: 52 Year
  Sex: Female

DRUGS (9)
  1. CAPECITABINE [Suspect]
     Active Substance: CAPECITABINE
     Indication: Breast cancer
     Dosage: OTHER FREQUENCY : 14DAYSON,7DAYSOFF;?
     Route: 048
     Dates: start: 202404
  2. PHENAZOPYRIDINE [Concomitant]
     Active Substance: PHENAZOPYRIDINE
  3. MECLIZINE [Concomitant]
     Active Substance: MECLIZINE HYDROCHLORIDE
  4. CALCIUM+ D [Concomitant]
  5. LOPERAMIDE [Concomitant]
     Active Substance: LOPERAMIDE
  6. MUL Tl VITAMIN ADULT 50+ [Concomitant]
  7. PANTOPRAZOLE [Concomitant]
     Active Substance: PANTOPRAZOLE
  8. POTASSIUM CHLORIDE [Concomitant]
     Active Substance: POTASSIUM CHLORIDE
  9. VOLTAREN 1% [Concomitant]

REACTIONS (4)
  - Vaginal cyst [None]
  - Vaginal neoplasm [None]
  - Breast cancer [None]
  - Malignant neoplasm progression [None]

NARRATIVE: CASE EVENT DATE: 20240801
